FAERS Safety Report 4416666-6 (Version None)
Quarter: 2004Q2

REPORT INFORMATION
  Report Type: 
  Country: None (occurrence: None)
  Receive Date: 20040630
  Receipt Date: 20040305
  Transmission Date: 20050107
  Serious: Yes (Hospitalization)
  Sender: FDA-Public Use
  Company Number: WAES 0403USA00643

PATIENT
  Age: 46 Year
  Sex: Male

DRUGS (4)
  1. HYZAAR [Suspect]
     Indication: HYPERTENSION
     Dosage: 100-25 MG/DAILY/PO
     Route: 047
     Dates: end: 20040219
  2. ACTOS [Concomitant]
  3. HUMULIN 70/30 [Concomitant]
  4. LOTREL [Concomitant]

REACTIONS (2)
  - HYPERKALAEMIA [None]
  - RENAL FAILURE ACUTE [None]
